FAERS Safety Report 4409719-X (Version None)
Quarter: 2004Q3

REPORT INFORMATION
  Report Type: 
  Country: None (occurrence: None)
  Receive Date: 20040727
  Receipt Date: 20040727
  Transmission Date: 20050211
  Serious: Yes (Life-Threatening, Other)
  Sender: FDA-Public Use
  Company Number: None

PATIENT
  Age: 48 Year
  Sex: Female
  Weight: 72.5755 kg

DRUGS (12)
  1. GAMIMUNE N 10% [Suspect]
     Indication: HEPATITIS C
     Dosage: 15 BOTTLES 1/99 2/99, 5/99 (TWICE MO X4 WKS)
  2. GAMIMUNE N 10% [Suspect]
     Indication: HEPATITIS B
     Dosage: 6 BOTTLES X 4 WKS
  3. GAMIMUNE N 10% [Suspect]
     Indication: HEPATITIS E
     Dosage: 6 BOTTLES X 4 WKS
  4. GAMIMUNE N 10% [Suspect]
  5. GAMIMUNE N 10% [Suspect]
  6. GAMIMUNE N 10% [Suspect]
  7. GAMIMUNE N 10% [Suspect]
  8. GAMIMUNE N 10% [Suspect]
  9. GAMIMUNE N 10% [Suspect]
  10. GAMIMUNE N 10% [Suspect]
  11. GAMIMUNE N 10% [Suspect]
  12. GAMIMUNE N 10% [Suspect]

REACTIONS (3)
  - HEPATITIS B [None]
  - HEPATITIS C [None]
  - PHARMACEUTICAL PRODUCT COMPLAINT [None]
